FAERS Safety Report 7316422-5 (Version None)
Quarter: 2011Q1

REPORT INFORMATION
  Report Type: 
  Country: None (occurrence: None)
  Receive Date: 20110225
  Receipt Date: 20110215
  Transmission Date: 20110831
  Serious: Yes (Hospitalization)
  Sender: FDA-Public Use
  Company Number: JP-MERCK-1102USA02535

PATIENT
  Age: 50 Year
  Sex: Male

DRUGS (1)
  1. NOROXIN [Suspect]
     Dosage: PATIENT TOOK EITHER 100 OR 200 MG FORMULATION
     Route: 065

REACTIONS (1)
  - INTERSTITIAL LUNG DISEASE [None]
